FAERS Safety Report 9665370 (Version 1)
Quarter: 2013Q4

REPORT INFORMATION
  Report Type: Report from Study
  Country: US (occurrence: US)
  Receive Date: 20131104
  Receipt Date: 20131104
  Transmission Date: 20140711
  Serious: Yes (Hospitalization)
  Sender: FDA-Public Use
  Company Number: US-BRISTOL-MYERS SQUIBB COMPANY-19680941

PATIENT
  Age: 74 Year
  Sex: Female
  Weight: 85 kg

DRUGS (2)
  1. IPILIMUMAB [Suspect]
     Indication: MALIGNANT MELANOMA
     Dosage: LAST ADM DATE: 16SEP13
     Dates: start: 20130805
  2. INTERFERON ALFA-2B [Suspect]
     Indication: MALIGNANT MELANOMA
     Dosage: 1DF: 171 MU,LAST ADM DATE: 04OCT13
     Dates: start: 20130805

REACTIONS (2)
  - Colitis [Recovering/Resolving]
  - Constipation [Recovering/Resolving]
